FAERS Safety Report 9773507 (Version 4)
Quarter: 2014Q1

REPORT INFORMATION
  Report Type: Spontaneous
  Country: US (occurrence: US)
  Receive Date: 20131219
  Receipt Date: 20140305
  Transmission Date: 20141002
  Serious: Yes (Hospitalization, Other)
  Sender: FDA-Public Use
  Company Number: US-GILEAD-2013-0090328

PATIENT
  Sex: Female

DRUGS (2)
  1. LETAIRIS [Suspect]
     Indication: PULMONARY HYPERTENSION
     Dosage: 5 MG, QD
     Route: 065
     Dates: start: 20130807
  2. LETAIRIS [Suspect]
     Indication: SCLERODERMA
     Dosage: 5 MG, UNK
     Dates: start: 20130806

REACTIONS (6)
  - Lower limb fracture [Unknown]
  - Pneumonia [Unknown]
  - Staphylococcal infection [Unknown]
  - Foot fracture [Unknown]
  - Fall [Unknown]
  - Fatigue [Unknown]
